FAERS Safety Report 8165668-5 (Version None)
Quarter: 2012Q1

REPORT INFORMATION
  Report Type: 
  Country: None (occurrence: None)
  Receive Date: 20120223
  Receipt Date: 20120223
  Transmission Date: 20120608
  Serious: Yes (Life-Threatening)
  Sender: FDA-Public Use
  Company Number: None

PATIENT
  Age: 36 Year
  Sex: Female
  Weight: 74.8435 kg

DRUGS (2)
  1. ABILIFY [Suspect]
     Dosage: .5 MG DAILY
  2. RISPERDAL [Suspect]
     Indication: PERSONALITY DISORDER
     Dosage: 20 MG DAILY ABOUT 11/95-98

REACTIONS (2)
  - ANGER [None]
  - INCORRECT DOSE ADMINISTERED [None]
